FAERS Safety Report 16403578 (Version 12)
Quarter: 2019Q4

REPORT INFORMATION
  Report Type: Report from Study
  Country: DE (occurrence: DE)
  Receive Date: 20190607
  Receipt Date: 20191231
  Transmission Date: 20200122
  Serious: Yes (Hospitalization, Other)
  Sender: FDA-Public Use
  Company Number: DE-SA-2019SA099080

PATIENT
  Age: 31 Year
  Sex: Male
  Weight: 63 kg

DRUGS (9)
  1. URBASON SOLUB [Concomitant]
     Active Substance: METHYLPREDNISOLONE SODIUM SUCCINATE
     Indication: MULTIPLE SCLEROSIS RELAPSE
     Dosage: 1 G, QD
     Route: 042
     Dates: start: 20190218, end: 20190220
  2. ACYCLOVIR [ACICLOVIR] [Concomitant]
     Active Substance: ACYCLOVIR
     Indication: MIDDLE EAR INFLAMMATION
     Dosage: 200 MG, UNK
     Route: 048
     Dates: start: 20190404
  3. ACYCLOVIR [ACICLOVIR] [Concomitant]
     Active Substance: ACYCLOVIR
     Indication: LEUKOPENIA
  4. FAMPRIDINE [Concomitant]
     Active Substance: DALFAMPRIDINE
     Indication: GAIT DISTURBANCE
     Dosage: 10 MG, BID
     Route: 048
     Dates: start: 20190325
  5. ALEMTUZUMAB [Suspect]
     Active Substance: ALEMTUZUMAB
     Indication: RELAPSING MULTIPLE SCLEROSIS
     Dosage: 12 MG, QD
     Route: 041
     Dates: start: 20190307, end: 20190309
  6. ALEMTUZUMAB [Suspect]
     Active Substance: ALEMTUZUMAB
     Dosage: 12 MG, QD
     Route: 041
     Dates: start: 20170306, end: 20170306
  7. ACYCLOVIR [ACICLOVIR] [Concomitant]
     Active Substance: ACYCLOVIR
     Indication: PHARYNGITIS
  8. ALEMTUZUMAB [Suspect]
     Active Substance: ALEMTUZUMAB
     Dosage: 12 MG, QD
     Route: 041
     Dates: start: 20180226, end: 20180228
  9. ALEMTUZUMAB [Suspect]
     Active Substance: ALEMTUZUMAB
     Dosage: 12 MG, QD
     Route: 041
     Dates: start: 20170228, end: 20170303

REACTIONS (8)
  - Immune thrombocytopenic purpura [Not Recovered/Not Resolved]
  - Otitis media [Recovered/Resolved]
  - Leukopenia [Not Recovered/Not Resolved]
  - Depression [Not Recovered/Not Resolved]
  - Pharyngitis [Recovered/Resolved]
  - Neutropenia [Not Recovered/Not Resolved]
  - Influenza [Not Recovered/Not Resolved]
  - Oral candidiasis [Unknown]

NARRATIVE: CASE EVENT DATE: 20190328
